FAERS Safety Report 7046830-1 (Version None)
Quarter: 2010Q4

REPORT INFORMATION
  Report Type: 
  Country: None (occurrence: None)
  Receive Date: 20101015
  Receipt Date: 20101011
  Transmission Date: 20110411
  Serious: Yes (Life-Threatening, Hospitalization)
  Sender: FDA-Public Use
  Company Number: DE-JNJFOC-20101002540

PATIENT
  Age: 28 Year
  Sex: Male

DRUGS (6)
  1. RISPERDAL CONSTA [Suspect]
     Indication: PRODUCT USED FOR UNKNOWN INDICATION
     Route: 030
  2. RISPERDAL CONSTA [Suspect]
     Route: 030
  3. AMITRIPTYLINE HCL [Concomitant]
     Route: 065
  4. LEVOMEPROMAZIN [Concomitant]
     Route: 065
  5. ERGENYL [Concomitant]
     Route: 065
  6. ZYPREXA [Concomitant]
     Route: 065

REACTIONS (3)
  - GANGRENE [None]
  - PNEUMONIA [None]
  - PNEUMOTHORAX [None]
